FAERS Safety Report 9197577 (Version 1)
Quarter: 2013Q1

REPORT INFORMATION
  Report Type: Report from Study
  Country: JP (occurrence: JP)
  Receive Date: 20130328
  Receipt Date: 20130328
  Transmission Date: 20140127
  Serious: Yes (Other)
  Sender: FDA-Public Use
  Company Number: JP-VIIV HEALTHCARE LIMITED-B0877968A

PATIENT
  Age: 37 Year
  Sex: Male
  Weight: 76 kg

DRUGS (15)
  1. LEXIVA [Suspect]
     Indication: HIV INFECTION
     Dosage: 1400MG PER DAY
     Route: 048
     Dates: start: 20090409, end: 20100825
  2. EPZICOM [Suspect]
     Indication: HIV INFECTION
     Route: 048
     Dates: start: 20071016, end: 20071024
  3. EPZICOM [Suspect]
     Indication: HIV INFECTION
     Route: 048
     Dates: start: 20090409
  4. NORVIR [Suspect]
     Indication: HIV INFECTION
     Route: 048
     Dates: start: 20071016, end: 20071024
  5. NORVIR [Suspect]
     Indication: HIV INFECTION
     Route: 048
     Dates: start: 20071105
  6. NORVIR [Suspect]
     Indication: HIV INFECTION
     Route: 048
     Dates: start: 20090409, end: 20100825
  7. NORVIR [Suspect]
     Indication: HIV INFECTION
     Route: 048
     Dates: start: 20100826, end: 20110511
  8. PREZISTANAIVE [Suspect]
     Indication: HIV INFECTION
     Route: 048
     Dates: start: 20100826
  9. NORVIR [Suspect]
     Indication: HIV INFECTION
     Route: 048
     Dates: start: 20110512
  10. METHYCOBAL [Concomitant]
     Indication: TRIGEMINAL NEURALGIA
     Dosage: 500MCG THREE TIMES PER DAY
     Route: 048
     Dates: start: 20090507
  11. LOXONIN [Concomitant]
     Indication: TRIGEMINAL NEURALGIA
     Dosage: 60MG TWICE PER DAY
     Route: 048
     Dates: start: 20090423
  12. ALLELOCK [Concomitant]
     Indication: DERMATITIS ATOPIC
     Dosage: 5MG TWICE PER DAY
     Route: 048
     Dates: start: 20090702
  13. GASTER D [Concomitant]
     Indication: GASTRITIS
     Dosage: 20MG TWICE PER DAY
     Route: 048
     Dates: start: 20091109
  14. NEOMALLERMIN [Concomitant]
     Indication: DERMATITIS ATOPIC
     Dosage: 6MG PER DAY
     Route: 048
     Dates: start: 20100701
  15. MYONAL [Concomitant]
     Indication: BACK PAIN
     Dosage: 50MG THREE TIMES PER DAY
     Route: 048
     Dates: start: 20111116

REACTIONS (4)
  - Pneumonia [Recovering/Resolving]
  - Hyperlipidaemia [Not Recovered/Not Resolved]
  - Hyperuricaemia [Recovering/Resolving]
  - Diarrhoea [Recovering/Resolving]
